FAERS Safety Report 9803895 (Version 1)
Quarter: 2014Q1

REPORT INFORMATION
  Report Type: Spontaneous
  Country: US (occurrence: US)
  Receive Date: 20140108
  Receipt Date: 20140108
  Transmission Date: 20141002
  Serious: No
  Sender: FDA-Public Use
  Company Number: US-009507513-1401USA002037

PATIENT
  Age: 38 Year
  Sex: Male

DRUGS (7)
  1. CLARITIN [Suspect]
     Indication: NASAL CONGESTION
     Dosage: UNK, UNKNOWN
     Route: 048
  2. CLARITIN [Suspect]
     Indication: RHINORRHOEA
  3. CLARITIN [Suspect]
     Indication: NASAL DISCOMFORT
  4. CLARITIN [Suspect]
     Indication: THROAT IRRITATION
  5. CLARITIN [Suspect]
     Indication: EYE PRURITUS
  6. CLARITIN [Suspect]
     Indication: OCULAR HYPERAEMIA
  7. CLARITIN [Suspect]
     Indication: HYPERSENSITIVITY

REACTIONS (1)
  - Drug effect decreased [Unknown]
